FAERS Safety Report 5217550-0 (Version None)
Quarter: 2007Q1

REPORT INFORMATION
  Report Type: 
  Country: None (occurrence: None)
  Receive Date: 20070124
  Receipt Date: 20060317
  Transmission Date: 20070707
  Serious: No
  Sender: FDA-Public Use
  Company Number: US-GLAXOSMITHKLINE-A0598041A

PATIENT
  Age: 36 Year
  Sex: Female

DRUGS (2)
  1. PAXIL CR [Suspect]
     Indication: DEPRESSION
     Dosage: 25MG PER DAY
     Route: 048
     Dates: start: 20050201, end: 20060309
  2. UNSPECIFIED MEDICATION [Concomitant]
     Indication: ANXIETY

REACTIONS (4)
  - CRYING [None]
  - DRUG INEFFECTIVE [None]
  - FEELING COLD [None]
  - FEELING HOT [None]
